FAERS Safety Report 4524502-2 (Version None)
Quarter: 2005Q1

REPORT INFORMATION
  Report Type: 
  Country: None (occurrence: None)
  Receive Date: 20041117
  Receipt Date: 20040122
  Transmission Date: 20050727
  Serious: Yes (Hospitalization)
  Sender: FDA-Public Use
  Company Number: US-JNJFOC-20031105254

PATIENT
  Sex: Female

DRUGS (1)
  1. LEVAQUIN [Suspect]
     Dosage: 8 DOSE (S)

REACTIONS (3)
  - ARTHRALGIA [None]
  - TENDON RUPTURE [None]
  - URTICARIA [None]
